FAERS Safety Report 10269425 (Version 12)
Quarter: 2018Q3

REPORT INFORMATION
  Report Type: Report from Study
  Country: CA (occurrence: CA)
  Receive Date: 20140701
  Receipt Date: 20180914
  Transmission Date: 20181010
  Serious: Yes (Death, Life-Threatening, Hospitalization, Other)
  Sender: FDA-Public Use
  Company Number: CA-ROCHE-1424306

PATIENT
  Age: 77 Year
  Sex: Male
  Weight: 76 kg

DRUGS (37)
  1. BENDAMUSTINE [Suspect]
     Active Substance: BENDAMUSTINE
     Dosage: C1D2 LAST DOSE PRIOR TO SAES 04/JUN/2014
     Route: 042
     Dates: start: 20140604, end: 20140623
  2. ZOPICLONE [Concomitant]
     Active Substance: ZOPICLONE
     Route: 048
     Dates: start: 2010
  3. RANITIDINE. [Concomitant]
     Active Substance: RANITIDINE
     Indication: PROPHYLAXIS
     Route: 048
     Dates: start: 20140531, end: 20140603
  4. OBINUTUZUMAB. [Suspect]
     Active Substance: OBINUTUZUMAB
     Dosage: C1D15 LAST DOSE PRIOR TO SAES 17/JUN/2014
     Route: 042
     Dates: start: 20140617, end: 20140623
  5. TRAZODONE [Concomitant]
     Active Substance: TRAZODONE HYDROCHLORIDE
     Route: 048
     Dates: start: 20140621, end: 20140622
  6. OBINUTUZUMAB. [Suspect]
     Active Substance: OBINUTUZUMAB
     Dosage: C1D2
     Route: 042
     Dates: start: 20140604, end: 20140604
  7. OBINUTUZUMAB. [Suspect]
     Active Substance: OBINUTUZUMAB
     Dosage: C1D8
     Route: 042
     Dates: start: 20140610, end: 20140610
  8. BENDAMUSTINE [Suspect]
     Active Substance: BENDAMUSTINE
     Indication: CHRONIC LYMPHOCYTIC LEUKAEMIA
     Dosage: C1D1
     Route: 042
     Dates: start: 20140603, end: 20140603
  9. SYMBICORT [Concomitant]
     Active Substance: BUDESONIDE\FORMOTEROL FUMARATE DIHYDRATE
     Dosage: 4 PUFFS
     Route: 045
     Dates: start: 2012
  10. ZOPICLONE [Concomitant]
     Active Substance: ZOPICLONE
     Route: 065
     Dates: start: 20140526
  11. ALPRAZOLAM. [Concomitant]
     Active Substance: ALPRAZOLAM
     Route: 065
     Dates: start: 20140526
  12. LANSOPRAZOLE. [Concomitant]
     Active Substance: LANSOPRAZOLE
     Route: 048
     Dates: start: 2004
  13. BENADRYL [Concomitant]
     Active Substance: DIPHENHYDRAMINE HYDROCHLORIDE
     Indication: PROPHYLAXIS
     Dosage: 50MG PRE GA101
     Route: 042
     Dates: start: 20140603, end: 20140617
  14. TYLENOL EXTRA STRENGTH [Concomitant]
     Active Substance: ACETAMINOPHEN
     Indication: PROPHYLAXIS
     Dosage: 650MG 30 MINS PRE GA101
     Route: 048
     Dates: start: 20140603, end: 20140617
  15. SEPTRA DS [Concomitant]
     Active Substance: SULFAMETHOXAZOLE\TRIMETHOPRIM
     Dosage: 2 TABS Q MON, WED, FRI
     Route: 048
     Dates: start: 20140603
  16. LEVAQUIN [Concomitant]
     Active Substance: LEVOFLOXACIN
     Route: 048
     Dates: start: 20140619
  17. OBINUTUZUMAB. [Suspect]
     Active Substance: OBINUTUZUMAB
     Indication: CHRONIC LYMPHOCYTIC LEUKAEMIA
     Dosage: C1D1
     Route: 042
     Dates: start: 20140603, end: 20140603
  18. NORMAL SALINE [Suspect]
     Active Substance: SODIUM CHLORIDE
     Indication: TUMOUR LYSIS SYNDROME
     Dosage: OVER ONE HOUR. SINGLE DOSE
     Route: 042
     Dates: start: 20140605, end: 20140605
  19. XARELTO [Concomitant]
     Active Substance: RIVAROXABAN
     Dosage: DAILY IF PLATELETS ABOVE 100
     Route: 048
     Dates: start: 20130412, end: 20140606
  20. DEXAMETHASONE. [Concomitant]
     Active Substance: DEXAMETHASONE
     Indication: PROPHYLAXIS
     Route: 042
     Dates: start: 20140603, end: 20140604
  21. DALTEPARIN [Concomitant]
     Active Substance: DALTEPARIN
     Indication: PROPHYLAXIS
     Dosage: 5000 UNIT
     Route: 058
     Dates: start: 20140622
  22. ZOPICLONE [Concomitant]
     Active Substance: ZOPICLONE
     Dosage: SINGLE DOSE
     Route: 048
     Dates: start: 20140621, end: 20140621
  23. REACTINE (CANADA) [Concomitant]
     Active Substance: CETIRIZINE HYDROCHLORIDE
     Indication: PROPHYLAXIS
     Route: 048
     Dates: start: 20140531, end: 20140603
  24. IMODIUM [Concomitant]
     Active Substance: LOPERAMIDE HYDROCHLORIDE
     Dosage: 2 PILLS
     Route: 048
     Dates: start: 1994
  25. ZOFRAN [Concomitant]
     Active Substance: ONDANSETRON HYDROCHLORIDE
     Dosage: 30 MINS PRE BENDA THEN Q12H X 4 DOSES
     Route: 048
     Dates: start: 20140603, end: 20140604
  26. ATIVAN [Concomitant]
     Active Substance: LORAZEPAM
     Route: 060
     Dates: start: 20140620, end: 20140621
  27. NORMAL SALINE [Suspect]
     Active Substance: SODIUM CHLORIDE
     Indication: PROPHYLAXIS
     Dosage: DOSE: 125ML/HR
     Route: 042
     Dates: start: 20140602, end: 20140603
  28. ALPRAZOLAM. [Concomitant]
     Active Substance: ALPRAZOLAM
     Route: 048
     Dates: start: 2010
  29. TYLENOL EXTRA STRENGTH [Concomitant]
     Active Substance: ACETAMINOPHEN
     Route: 048
     Dates: start: 1994
  30. ACYCLOVIR. [Concomitant]
     Active Substance: ACYCLOVIR
     Indication: PROPHYLAXIS
     Route: 048
     Dates: start: 20140603
  31. MAXERAN [Concomitant]
     Active Substance: METOCLOPRAMIDE HYDROCHLORIDE
     Route: 048
     Dates: start: 20140617
  32. XARELTO [Concomitant]
     Active Substance: RIVAROXABAN
     Route: 065
     Dates: start: 2004
  33. ALLOPURINOL. [Concomitant]
     Active Substance: ALLOPURINOL
     Indication: PROPHYLAXIS
     Dosage: DAILY; HOLD ON BENDAMUSTINE
     Route: 048
     Dates: start: 20140601, end: 20140607
  34. SYMBICORT [Concomitant]
     Active Substance: BUDESONIDE\FORMOTEROL FUMARATE DIHYDRATE
     Dosage: DAILY DOSE: 4 PUFFS
     Route: 065
     Dates: start: 20140526
  35. LANSOPRAZOLE. [Concomitant]
     Active Substance: LANSOPRAZOLE
     Route: 048
     Dates: start: 20140526
  36. GRAVOL [Concomitant]
     Active Substance: DIMENHYDRINATE
     Route: 048
     Dates: start: 20140616
  37. MONTELUKAST [Concomitant]
     Active Substance: MONTELUKAST SODIUM
     Indication: PROPHYLAXIS
     Route: 048
     Dates: start: 20140531, end: 20140602

REACTIONS (3)
  - Death [Fatal]
  - Pleural effusion [Not Recovered/Not Resolved]
  - Tumour lysis syndrome [Recovered/Resolved]

NARRATIVE: CASE EVENT DATE: 20140605
